FAERS Safety Report 9227191 (Version 1)
Quarter: 2013Q2

REPORT INFORMATION
  Report Type: Spontaneous
  Country: TH (occurrence: None)
  Receive Date: 20130410
  Receipt Date: 20130410
  Transmission Date: 20140414
  Serious: Yes (Death)
  Sender: FDA-Public Use
  Company Number: AXC-2013-000135

PATIENT
  Age: 72 Year
  Sex: Male

DRUGS (7)
  1. SUCRALFATE [Suspect]
     Indication: PRODUCT USED FOR UNKNOWN INDICATION
     Route: 048
     Dates: start: 20001226, end: 20010118
  2. CEFTAZIDIME [Concomitant]
  3. POTASSIUM CHLORIDE (POTASSIUM CHLORIDE) [Concomitant]
  4. DIAZEPAM (DIAZEPAM) [Concomitant]
  5. FENOTEROL HYDROBROMIDE W/IPRATROPIUM BROMIDE( FENOTEROL HYDROBROMIDE, IPRATROPIUM BROMIDE) [Concomitant]
  6. AMINOPHYLLINE (AMINOPHYLLINE) [Concomitant]
  7. CEFTRIAXONE (CEFTRIAXONE) [Concomitant]

REACTIONS (2)
  - Hypophosphataemia [None]
  - Disease progression [None]
